FAERS Safety Report 9960467 (Version 2)
Quarter: 2014Q2

REPORT INFORMATION
  Report Type: Spontaneous
  Country: US (occurrence: None)
  Receive Date: 20140228
  Receipt Date: 20140630
  Transmission Date: 20141212
  Serious: Yes (Hospitalization)
  Sender: FDA-Public Use
  Company Number: 2013US002606

PATIENT
  Age: 54 Year
  Sex: Female
  Weight: 109 kg

DRUGS (15)
  1. PONATINIB [Suspect]
     Indication: CHRONIC MYELOID LEUKAEMIA
     Route: 048
     Dates: start: 20110627, end: 20130929
  2. ALEVE [Concomitant]
  3. SYNTHROID (LEVOTHYROXINE SODIUM) [Concomitant]
  4. MULTIVITAMIN [Concomitant]
  5. LEXAPRO (ESCITALOPRAM OXALATE) [Concomitant]
  6. NORVASC (AMLODIPINE BESILATE) [Concomitant]
  7. CENTRUM SILVER [Concomitant]
  8. TYLENOL (PARACETAMOL) [Concomitant]
  9. COLACE (DOCUSATE SODIUM) [Concomitant]
  10. FLUCONAZOLE (FLUCONAZOLE) [Concomitant]
  11. CLOTRIMAZOLE [Concomitant]
  12. DULCOLAX (BISACODYL) [Concomitant]
  13. DIOSMIPLEX [Concomitant]
  14. FISH OIL (FISH OIL) [Concomitant]
  15. NEBIVOLOL [Concomitant]

REACTIONS (11)
  - Upper gastrointestinal haemorrhage [None]
  - Anaemia [None]
  - Muscular weakness [None]
  - Chest pain [None]
  - Dyspnoea [None]
  - Blood potassium decreased [None]
  - Anion gap decreased [None]
  - Mallory-Weiss syndrome [None]
  - Gastritis erosive [None]
  - Hypoaesthesia [None]
  - Axillary pain [None]
